FAERS Safety Report 15311621 (Version 1)
Quarter: 2018Q3

REPORT INFORMATION
  Report Type: Spontaneous
  Country: US (occurrence: US)
  Receive Date: 20180823
  Receipt Date: 20180823
  Transmission Date: 20181010
  Serious: No
  Sender: FDA-Public Use
  Company Number: US-COLLEGIUM PHARMACEUTICAL, INC.-2018CGM00242

PATIENT
  Age: 76 Year
  Sex: Female
  Weight: 70.25 kg

DRUGS (21)
  1. AMITIZA [Concomitant]
     Active Substance: LUBIPROSTONE
  2. LASIX [Concomitant]
     Active Substance: FUROSEMIDE
  3. LOSARTAN. [Concomitant]
     Active Substance: LOSARTAN
  4. VENTOLIN [Concomitant]
     Active Substance: ALBUTEROL SULFATE
  5. HYDRALAZINE [Concomitant]
     Active Substance: HYDRALAZINE HYDROCHLORIDE
  6. XANAX [Concomitant]
     Active Substance: ALPRAZOLAM
  7. XTAMPZA ER [Suspect]
     Active Substance: OXYCODONE
     Indication: PAIN
     Dosage: 36 MG, 2X/DAY (EVERY 12 HOURS)
     Route: 048
     Dates: start: 20180221, end: 201802
  8. NORVASC [Concomitant]
     Active Substance: AMLODIPINE BESYLATE
  9. PRILOSEC [Concomitant]
     Active Substance: OMEPRAZOLE MAGNESIUM
  10. FOLIC [Concomitant]
     Active Substance: FOLIC ACID
  11. MIRALAX [Concomitant]
     Active Substance: POLYETHYLENE GLYCOL 3350
  12. ATENOLOL. [Concomitant]
     Active Substance: ATENOLOL
  13. PRAVASTATIN. [Concomitant]
     Active Substance: PRAVASTATIN
  14. NTG [Concomitant]
     Active Substance: NITROGLYCERIN
  15. CLONIDINE. [Concomitant]
     Active Substance: CLONIDINE
  16. MOVANTIK [Concomitant]
     Active Substance: NALOXEGOL OXALATE
  17. ZANTAC [Concomitant]
     Active Substance: RANITIDINE HYDROCHLORIDE
  18. CELEXA [Concomitant]
     Active Substance: CITALOPRAM HYDROBROMIDE
  19. VITAMIN D3 [Concomitant]
     Active Substance: CHOLECALCIFEROL
  20. DULERA [Concomitant]
     Active Substance: FORMOTEROL FUMARATE DIHYDRATE\MOMETASONE FUROATE
  21. VITAMIN B [Concomitant]
     Active Substance: VITAMIN B

REACTIONS (3)
  - Vomiting [Recovered/Resolved]
  - Gastrooesophageal reflux disease [Recovered/Resolved]
  - Product substitution issue [Recovered/Resolved]

NARRATIVE: CASE EVENT DATE: 201802
